FAERS Safety Report 6473672 (Version 13)
Quarter: 2012Q4

REPORT INFORMATION
  Report Type: 
  Country: US (occurrence: US)
  Receive Date: 20071121
  Receipt Date: 20121227
  Transmission Date: 20130627
  Serious: Yes (Congenital Anomaly, Other)
  Sender: FDA-Public Use
  Company Number: US-PFIZER INC-2010139959

PATIENT
  Age: 5 Week
  Sex: Female

DRUGS (12)
  1. ZOLOFT [Suspect]
     Indication: DEPRESSION
     Dosage: 50 mg, 1x/day
     Route: 064
     Dates: start: 20051029
  2. ZOLOFT [Suspect]
     Indication: ANXIETY
  3. ZOLOFT [Suspect]
     Indication: MOOD DISORDER NOS
  4. PAXIL [Concomitant]
     Dosage: UNK
     Route: 064
  5. MICROGESTIN [Concomitant]
     Dosage: UNK
     Route: 064
  6. PROCTOFOAM HC [Concomitant]
     Dosage: UNK
     Route: 064
     Dates: start: 20060524
  7. XANAX [Concomitant]
     Dosage: UNK
     Route: 064
  8. PRENATAL VITAMINS [Concomitant]
     Dosage: UNK
     Route: 064
  9. TYLENOL [Concomitant]
     Dosage: UNK
     Route: 064
  10. TUMS [Concomitant]
     Dosage: UNK
     Route: 064
  11. CLINDAMYCIN [Concomitant]
     Dosage: 300 mg, UNK
     Route: 064
     Dates: start: 20060626
  12. AMOXICILLIN [Concomitant]
     Dosage: 500 mg, UNK
     Route: 064
     Dates: start: 20060706

REACTIONS (11)
  - Foetal exposure during pregnancy [Unknown]
  - Patent ductus arteriosus [Unknown]
  - Ventricular septal defect [Not Recovered/Not Resolved]
  - Pulmonary valve incompetence [Unknown]
  - Mitral valve incompetence [Unknown]
  - Tricuspid valve incompetence [Unknown]
  - Aortic valve incompetence [Not Recovered/Not Resolved]
  - Persistent foetal circulation [Unknown]
  - Atrial septal defect [Unknown]
  - Congenital aortic stenosis [Not Recovered/Not Resolved]
  - Ventricular hypertrophy [Unknown]
